FAERS Safety Report 8320354-3 (Version None)
Quarter: 2012Q2

REPORT INFORMATION
  Report Type: 
  Country: None (occurrence: None)
  Receive Date: 20120426
  Receipt Date: 20120426
  Transmission Date: 20120825
  Serious: Yes (Other)
  Sender: FDA-Public Use
  Company Number: None

PATIENT
  Sex: Male
  Weight: 64.4108 kg

DRUGS (1)
  1. CLINDAMYCIN [Suspect]
     Indication: TOOTH INFECTION
     Dosage: 300 MG 4 X DAY ORAL
     Route: 048
     Dates: start: 20120310, end: 20120317

REACTIONS (7)
  - JOINT STIFFNESS [None]
  - NAUSEA [None]
  - DIARRHOEA [None]
  - ABDOMINAL PAIN UPPER [None]
  - MALAISE [None]
  - CHILLS [None]
  - HYPERHIDROSIS [None]
